FAERS Safety Report 19277942 (Version 5)
Quarter: 2021Q3

REPORT INFORMATION
  Report Type: Spontaneous
  Country: US (occurrence: US)
  Receive Date: 20210520
  Receipt Date: 20210730
  Transmission Date: 20211014
  Serious: Yes (Other)
  Sender: FDA-Public Use
  Company Number: US-UNITED THERAPEUTICS-UNT-2021-009090

PATIENT
  Sex: Male
  Weight: 53.52 kg

DRUGS (7)
  1. TYVASO [Suspect]
     Active Substance: TREPROSTINIL
     Dosage: 42 ?G, QID
     Dates: start: 2021, end: 2021
  2. TYVASO [Suspect]
     Active Substance: TREPROSTINIL
     Dosage: UNK
  3. TYVASO [Suspect]
     Active Substance: TREPROSTINIL
     Dosage: 36 ?G
     Dates: start: 20210721
  4. TYVASO [Suspect]
     Active Substance: TREPROSTINIL
     Dosage: 48 ?G
     Dates: start: 2021, end: 20210721
  5. TYVASO [Suspect]
     Active Substance: TREPROSTINIL
     Dosage: 18?54 ?G, QID
     Dates: start: 2021, end: 202105
  6. TYVASO [Suspect]
     Active Substance: TREPROSTINIL
     Indication: PULMONARY ARTERIAL HYPERTENSION
     Dosage: UNK
     Dates: start: 20210506
  7. TYVASO [Suspect]
     Active Substance: TREPROSTINIL
     Dosage: UNK

REACTIONS (14)
  - Headache [Unknown]
  - Thirst [Unknown]
  - Vision blurred [Unknown]
  - Dysuria [Unknown]
  - Dyspnoea [Not Recovered/Not Resolved]
  - Blood pressure systolic decreased [Unknown]
  - Dizziness [Unknown]
  - Oxygen saturation decreased [Unknown]
  - Hypotension [Not Recovered/Not Resolved]
  - Chest pain [Unknown]
  - Therapy non-responder [Unknown]
  - Fatigue [Unknown]
  - Paraesthesia [Unknown]
  - Dry mouth [Unknown]

NARRATIVE: CASE EVENT DATE: 2021
